FAERS Safety Report 10299258 (Version 5)
Quarter: 2015Q1

REPORT INFORMATION
  Report Type: Spontaneous
  Country: US (occurrence: US)
  Receive Date: 20140711
  Receipt Date: 20150223
  Transmission Date: 20150720
  Serious: No
  Sender: FDA-Public Use
  Company Number: US-PFIZER INC-2014193025

PATIENT
  Age: 80 Year
  Sex: Female
  Weight: 54 kg

DRUGS (6)
  1. REVATIO [Suspect]
     Active Substance: SILDENAFIL CITRATE
     Dosage: 20 MG (1 TABLET), 3X/DAY
     Route: 048
  2. LETAIRIS [Concomitant]
     Active Substance: AMBRISENTAN
     Dosage: 5 MG, 1X/DAY
  3. TYVASO [Concomitant]
     Active Substance: TREPROSTINIL
     Dosage: 0.6 MG (1) ML 4X/DAY
  4. PENTOXIFYLLINE. [Concomitant]
     Active Substance: PENTOXIFYLLINE
     Dosage: 400 MG, 3X/DAY
  5. AZELASTINE [Concomitant]
     Active Substance: AZELASTINE
     Dosage: 137 MCG, TWICE A DAY
  6. REVATIO [Suspect]
     Active Substance: SILDENAFIL CITRATE
     Indication: PULMONARY HYPERTENSION
     Dosage: 20 MG (1 TABLET), 3X/DAY
     Route: 048
     Dates: start: 201404, end: 20140605

REACTIONS (1)
  - Drug ineffective [Unknown]

NARRATIVE: CASE EVENT DATE: 20140603
